FAERS Safety Report 4530857-5 (Version None)
Quarter: 2004Q4

REPORT INFORMATION
  Report Type: 
  Country: None (occurrence: None)
  Receive Date: 20041215
  Receipt Date: 20041208
  Transmission Date: 20050328
  Serious: Yes (Death, Hospitalization, Other)
  Sender: FDA-Public Use
  Company Number: 200420498BWH

PATIENT
  Age: 45 Year
  Sex: Male
  Weight: 92.3 kg

DRUGS (8)
  1. AVELOX [Suspect]
     Indication: SINUSITIS
     Dosage: ORAL
     Route: 048
  2. AUGMENTIN '125' [Suspect]
     Indication: CHRONIC SINUSITIS
  3. TEQUIN [Suspect]
     Indication: CHRONIC SINUSITIS
  4. CLINDAMYCIN HCL [Suspect]
     Indication: CHRONIC SINUSITIS
  5. ALLEGRA-D [Concomitant]
  6. FLONASE [Concomitant]
  7. NASONEX [Concomitant]
  8. PREDNISONE [Concomitant]

REACTIONS (41)
  - ADVERSE DRUG REACTION [None]
  - ASCITES [None]
  - ATELECTASIS [None]
  - BLOOD CHLORIDE DECREASED [None]
  - BLOOD POTASSIUM INCREASED [None]
  - BLOOD PRESSURE DIASTOLIC DECREASED [None]
  - BLOOD SODIUM DECREASED [None]
  - CARDIAC ARREST [None]
  - CHEST PAIN [None]
  - CHILLS [None]
  - CHOLESTASIS [None]
  - CHRONIC HEPATITIS [None]
  - DIALYSIS [None]
  - DISEASE PROGRESSION [None]
  - DISSEMINATED INTRAVASCULAR COAGULATION [None]
  - DRUG INEFFECTIVE [None]
  - DYSPNOEA [None]
  - ELECTROCARDIOGRAM ST SEGMENT ABNORMAL [None]
  - GENERAL PHYSICAL HEALTH DETERIORATION [None]
  - HAEMATOCHEZIA [None]
  - HEPATIC FAILURE [None]
  - HEPATIC STEATOSIS [None]
  - HEPATO-LENTICULAR DEGENERATION [None]
  - HYPOAESTHESIA [None]
  - LABORATORY TEST ABNORMAL [None]
  - LEUKOPENIA [None]
  - LIVER DISORDER [None]
  - LUNG INFILTRATION [None]
  - MULTI-ORGAN FAILURE [None]
  - MUSCLE ATROPHY [None]
  - PANCREATIC INSUFFICIENCY [None]
  - PANCYTOPENIA [None]
  - PARAESTHESIA [None]
  - PULMONARY OEDEMA [None]
  - PYREXIA [None]
  - REFUSAL OF TREATMENT BY PATIENT [None]
  - RENAL FAILURE [None]
  - RESPIRATORY DISORDER [None]
  - SPIDER NAEVUS [None]
  - TACHYARRHYTHMIA [None]
  - TROPONIN INCREASED [None]
